FAERS Safety Report 12081286 (Version 1)
Quarter: 2016Q1

REPORT INFORMATION
  Report Type: Spontaneous
  Country: US (occurrence: US)
  Receive Date: 20160216
  Receipt Date: 20160216
  Transmission Date: 20160526
  Serious: Yes (Hospitalization, Other)
  Sender: FDA-Public Use
  Company Number: US-EMD SERONO-230610K05USA

PATIENT
  Sex: Female

DRUGS (3)
  1. LIORESAL [Suspect]
     Active Substance: BACLOFEN
     Indication: MULTIPLE SCLEROSIS
     Route: 037
     Dates: start: 200410
  2. REBIF [Suspect]
     Active Substance: INTERFERON BETA-1A
     Route: 058
  3. REBIF [Suspect]
     Active Substance: INTERFERON BETA-1A
     Indication: MULTIPLE SCLEROSIS
     Route: 058
     Dates: start: 20040621

REACTIONS (8)
  - Hypersomnia [Not Recovered/Not Resolved]
  - Mitral valve prolapse [Unknown]
  - Pulmonary thrombosis [Unknown]
  - Muscle spasms [Not Recovered/Not Resolved]
  - Meningitis chemical [Unknown]
  - Thrombosis [Unknown]
  - Mitral valve incompetence [Unknown]
  - Injection site bruising [Recovering/Resolving]

NARRATIVE: CASE EVENT DATE: 2004
